FAERS Safety Report 5694916-6 (Version None)
Quarter: 2008Q2

REPORT INFORMATION
  Report Type: 
  Country: None (occurrence: None)
  Receive Date: 20080404
  Receipt Date: 20080401
  Transmission Date: 20081010
  Serious: Yes (Death, Hospitalization)
  Sender: FDA-Public Use
  Company Number: US-BRISTOL-MYERS SQUIBB COMPANY-14133615

PATIENT
  Age: 66 Year
  Sex: Female
  Weight: 61 kg

DRUGS (7)
  1. ERBITUX [Suspect]
     Indication: SQUAMOUS CELL CARCINOMA
     Dosage: INFUSION STARTED ON 11FEB08
     Route: 042
     Dates: end: 20080318
  2. CISPLATIN [Suspect]
     Indication: SQUAMOUS CELL CARCINOMA
     Dosage: DOSE STARTED ON 11FEB08
     Route: 042
     Dates: end: 20080310
  3. RADIATION THERAPY [Suspect]
     Indication: SQUAMOUS CELL CARCINOMA
     Dates: end: 20070318
  4. COREG [Concomitant]
  5. FUROSEMIDE [Concomitant]
  6. NITROGLYCERIN [Concomitant]
  7. NORVASC [Concomitant]

REACTIONS (5)
  - HAEMOGLOBIN DECREASED [None]
  - HYPOXIA [None]
  - LEFT VENTRICULAR DYSFUNCTION [None]
  - MULTI-ORGAN FAILURE [None]
  - RENAL FAILURE [None]
